FAERS Safety Report 17957460 (Version 3)
Quarter: 2020Q4

REPORT INFORMATION
  Report Type: Report from Study
  Country: US (occurrence: US)
  Receive Date: 20200629
  Receipt Date: 20201001
  Transmission Date: 20210113
  Serious: Yes (Hospitalization, Other)
  Sender: FDA-Public Use
  Company Number: US-GILEAD-2020-0476918

PATIENT
  Age: 20 Year
  Sex: Male

DRUGS (26)
  1. LEVETIRACETAM. [Concomitant]
     Active Substance: LEVETIRACETAM
  2. NYSTOP [Concomitant]
     Active Substance: NYSTATIN
  3. LORAZEPAM. [Concomitant]
     Active Substance: LORAZEPAM
  4. MONTELUKAST [Concomitant]
     Active Substance: MONTELUKAST SODIUM
  5. AZTREONAM LYSINE [Suspect]
     Active Substance: AZTREONAM LYSINE
     Indication: CHRONIC RESPIRATORY FAILURE
     Dosage: 1 VIAL VIA NEB TID
     Route: 055
     Dates: start: 20181026
  6. HYOSCYAMINE. [Concomitant]
     Active Substance: HYOSCYAMINE
  7. PHENOBARBITAL. [Concomitant]
     Active Substance: PHENOBARBITAL
  8. TOBRAMYCIN. [Concomitant]
     Active Substance: TOBRAMYCIN
  9. FUROSEMIDE. [Concomitant]
     Active Substance: FUROSEMIDE
  10. METOCLOPRAMIDE. [Concomitant]
     Active Substance: METOCLOPRAMIDE
  11. FERROUS SULFATE. [Concomitant]
     Active Substance: FERROUS SULFATE
  12. IPRATROPIUM [Concomitant]
     Active Substance: IPRATROPIUM
  13. LIDOCAINE. [Concomitant]
     Active Substance: LIDOCAINE
  14. NEOMYCIN AND POLYMYXIN B SULFATES AND HYDROCORTISONE [Concomitant]
     Active Substance: HYDROCORTISONE\NEOMYCIN SULFATE\POLYMYXIN B SULFATE
  15. ALBUTEROL [SALBUTAMOL SULFATE] [Concomitant]
     Active Substance: ALBUTEROL SULFATE
  16. AZTREONAM LYSINE [Suspect]
     Active Substance: AZTREONAM LYSINE
     Indication: HYPERCAPNIA
  17. GLYCOPYRROLATE [GLYCOPYRRONIUM BROMIDE] [Concomitant]
     Active Substance: GLYCOPYRROLATE
  18. LEVALBUTEROL [LEVOSALBUTAMOL] [Concomitant]
     Active Substance: LEVALBUTEROL
  19. NYSTATIN. [Concomitant]
     Active Substance: NYSTATIN
  20. DOK [Concomitant]
     Active Substance: DOCUSATE SODIUM
  21. POLYETHYLENE GLYCOL [MACROGOL] [Concomitant]
     Active Substance: POLYETHYLENE GLYCOLS
  22. SSD [Concomitant]
     Active Substance: SILVER SULFADIAZINE
  23. AZITHROMYCIN ANHYDROUS. [Concomitant]
     Active Substance: AZITHROMYCIN ANHYDROUS
  24. CEFUROXIME. [Concomitant]
     Active Substance: CEFUROXIME
  25. NEXIUM I.V. [Concomitant]
     Active Substance: ESOMEPRAZOLE SODIUM
  26. VIMPAT [Concomitant]
     Active Substance: LACOSAMIDE

REACTIONS (7)
  - Sepsis [Unknown]
  - Hypersensitivity [Unknown]
  - Respiratory disorder [Unknown]
  - Respiratory failure [Unknown]
  - Fluid retention [Unknown]
  - Off label use [Not Recovered/Not Resolved]
  - Product use issue [Unknown]

NARRATIVE: CASE EVENT DATE: 20181026
